FAERS Safety Report 13040495 (Version 1)
Quarter: 2016Q4

REPORT INFORMATION
  Report Type: Spontaneous
  Country: US (occurrence: US)
  Receive Date: 20161219
  Receipt Date: 20161219
  Transmission Date: 20170207
  Serious: Yes (Other)
  Sender: FDA-Public Use
  Company Number: None

PATIENT
  Age: 34 Year
  Sex: Female
  Weight: 90 kg

DRUGS (4)
  1. IBUPROFEN. [Concomitant]
     Active Substance: IBUPROFEN
  2. CYMBALTA [Suspect]
     Active Substance: DULOXETINE HYDROCHLORIDE
     Indication: PERINATAL DEPRESSION
     Dosage: QUANTITY:1 CAPSULE(S); ORAL?
     Route: 048
     Dates: start: 20160920, end: 20161218
  3. ZOLOFT [Concomitant]
     Active Substance: SERTRALINE HYDROCHLORIDE
  4. TRAMADOL. [Concomitant]
     Active Substance: TRAMADOL

REACTIONS (9)
  - Middle insomnia [None]
  - Swelling face [None]
  - Musculoskeletal stiffness [None]
  - Pain [None]
  - Bruxism [None]
  - Withdrawal syndrome [None]
  - Facial pain [None]
  - Tooth fracture [None]
  - Pain in jaw [None]

NARRATIVE: CASE EVENT DATE: 20160920
